FAERS Safety Report 18900879 (Version 13)
Quarter: 2021Q3

REPORT INFORMATION
  Report Type: Report from Study
  Country: BR (occurrence: BR)
  Receive Date: 20210216
  Receipt Date: 20210723
  Transmission Date: 20211014
  Serious: Yes (Other)
  Sender: FDA-Public Use
  Company Number: BR-IPSEN BIOPHARMACEUTICALS, INC.-2021-03719

PATIENT
  Age: 36 Year
  Sex: Female

DRUGS (6)
  1. CABERGOLINE. [Suspect]
     Active Substance: CABERGOLINE
     Indication: BLOOD GROWTH HORMONE
     Dosage: 1 TABLET/DAY (STRENGTH: 0.5 MG)
     Route: 048
     Dates: start: 2017
  2. CABERGOLINE. [Suspect]
     Active Substance: CABERGOLINE
     Dosage: 4 TABLETS/WEEK
     Route: 048
     Dates: start: 202106
  3. CABERGOLINE. [Suspect]
     Active Substance: CABERGOLINE
     Dosage: TWO PILLS PER WEEK
     Route: 048
  4. SOMATULINE AUTOGEL [Suspect]
     Active Substance: LANREOTIDE ACETATE
     Indication: PITUITARY TUMOUR
     Route: 058
     Dates: start: 201706, end: 2018
  5. CABERGOLINE. [Suspect]
     Active Substance: CABERGOLINE
     Dosage: 3 TABLETS/WEEK, ONGOING (STRENGTH: 0.5 MG)
     Route: 048
  6. SOMATULINE AUTOGEL [Suspect]
     Active Substance: LANREOTIDE ACETATE
     Dosage: 120 MG EVERY 21 DAYS
     Route: 058
     Dates: start: 2018

REACTIONS (25)
  - COVID-19 [Recovered/Resolved]
  - Cyst [Not Recovered/Not Resolved]
  - Arthritis [Not Recovered/Not Resolved]
  - Injection site pain [Recovered/Resolved]
  - Eructation [Recovered/Resolved]
  - Off label use [Unknown]
  - Condition aggravated [Unknown]
  - Pain [Not Recovered/Not Resolved]
  - Application site pain [Recovered/Resolved]
  - Injection site discomfort [Not Recovered/Not Resolved]
  - Inflammation [Not Recovered/Not Resolved]
  - Hyperglycaemia [Not Recovered/Not Resolved]
  - Eructation [Recovered/Resolved]
  - Onychoclasis [Not Recovered/Not Resolved]
  - Eructation [Recovered/Resolved]
  - Rash vesicular [Recovered/Resolved]
  - Weight increased [Not Recovered/Not Resolved]
  - Heart rate decreased [Recovered/Resolved]
  - Therapeutic response delayed [Unknown]
  - Nausea [Not Recovered/Not Resolved]
  - Alopecia [Recovering/Resolving]
  - Bradycardia [Recovering/Resolving]
  - Pruritus [Recovered/Resolved]
  - Nausea [Recovered/Resolved]
  - Blood growth hormone increased [Not Recovered/Not Resolved]

NARRATIVE: CASE EVENT DATE: 2017
